FAERS Safety Report 15713034 (Version 1)
Quarter: 2018Q4

REPORT INFORMATION
  Report Type: Spontaneous
  Country: US (occurrence: US)
  Receive Date: 20181129
  Receipt Date: 20181129
  Transmission Date: 20190205
  Serious: No
  Sender: FDA-Public Use
  Company Number: None

PATIENT
  Age: 79 Year
  Sex: Male
  Weight: 69.85 kg

DRUGS (6)
  1. FIRMAGON [Suspect]
     Active Substance: DEGARELIX ACETATE
     Indication: METASTASIS
  2. XGEVA [Suspect]
     Active Substance: DENOSUMAB
     Indication: BRAIN NEOPLASM MALIGNANT
  3. XGEVA [Suspect]
     Active Substance: DENOSUMAB
     Indication: METASTASIS
  4. FIRMAGON [Suspect]
     Active Substance: DEGARELIX ACETATE
     Indication: BONE CANCER
  5. XGEVA [Suspect]
     Active Substance: DENOSUMAB
     Indication: PROSTATE CANCER
     Route: 058
  6. FIRMAGON [Suspect]
     Active Substance: DEGARELIX ACETATE
     Indication: PROSTATE CANCER
     Route: 058
     Dates: start: 201808

REACTIONS (1)
  - Hot flush [None]
